FAERS Safety Report 5699184-7 (Version None)
Quarter: 2008Q2

REPORT INFORMATION
  Report Type: 
  Country: None (occurrence: None)
  Receive Date: 20080407
  Receipt Date: 20080407
  Transmission Date: 20081010
  Serious: Yes (Other)
  Sender: FDA-Public Use
  Company Number: None

PATIENT
  Age: 32 Year
  Sex: Female
  Weight: 54.4316 kg

DRUGS (1)
  1. CITALOPRAM HYDROBROMIDE [Suspect]
     Indication: DEPRESSION
     Dosage: 20 MG. DAY PO
     Route: 048
     Dates: start: 20041001, end: 20060410

REACTIONS (6)
  - ANAESTHESIA [None]
  - FEMALE ORGASMIC DISORDER [None]
  - GENITAL DISORDER FEMALE [None]
  - HYPOAESTHESIA [None]
  - LIBIDO DECREASED [None]
  - SEXUAL DYSFUNCTION [None]
